FAERS Safety Report 7640564-8 (Version None)
Quarter: 2011Q3

REPORT INFORMATION
  Report Type: 
  Country: None (occurrence: None)
  Receive Date: 20110728
  Receipt Date: 20110714
  Transmission Date: 20111222
  Serious: No
  Sender: FDA-Public Use
  Company Number: US-BIOGENIDEC-2011BI026338

PATIENT
  Sex: Female

DRUGS (2)
  1. AVONEX [Suspect]
     Route: 030
     Dates: start: 20030101, end: 20110101
  2. AVONEX [Suspect]
     Indication: MULTIPLE SCLEROSIS
     Route: 030
     Dates: start: 19981201, end: 20030101

REACTIONS (6)
  - VISION BLURRED [None]
  - FATIGUE [None]
  - PARAESTHESIA [None]
  - ASTHENIA [None]
  - HYPOAESTHESIA [None]
  - MYALGIA [None]
